FAERS Safety Report 5918426-3 (Version None)
Quarter: 2008Q4

REPORT INFORMATION
  Report Type: 
  Country: None (occurrence: None)
  Receive Date: 20081014
  Receipt Date: 20081014
  Transmission Date: 20090506
  Serious: Yes (Life-Threatening)
  Sender: FDA-Public Use
  Company Number: None

PATIENT
  Sex: Female
  Weight: 72.5755 kg

DRUGS (14)
  1. AUGMENTIN '125' [Suspect]
     Indication: SEPSIS
     Dosage: 500 MG (10 ML) BID PO
     Route: 048
     Dates: start: 20080905, end: 20080906
  2. AUGMENTIN '125' [Suspect]
     Indication: URINARY TRACT INFECTION
     Dosage: 500 MG (10 ML) BID PO
     Route: 048
     Dates: start: 20080905, end: 20080906
  3. ACETAMINOPHEN [Concomitant]
  4. CEFTRIAXONE [Concomitant]
  5. CLIMDAMYCIN [Concomitant]
  6. ENOXAPARIN SODIUM [Concomitant]
  7. FAMOTIDINE [Concomitant]
  8. LEVOFLOXACIN [Concomitant]
  9. ZOSYN [Concomitant]
  10. POTASSIUM CHLORIDE [Concomitant]
  11. EXELON [Concomitant]
  12. SINEMET [Concomitant]
  13. TRIAMCINOLONE [Concomitant]
  14. VANCOMYCIN HYDROCHLORIDE [Concomitant]

REACTIONS (3)
  - CYANOSIS [None]
  - TONIC CLONIC MOVEMENTS [None]
  - UNRESPONSIVE TO STIMULI [None]
